FAERS Safety Report 24833602 (Version 1)
Quarter: 2025Q1

REPORT INFORMATION
  Report Type: Spontaneous
  Country: US (occurrence: US)
  Receive Date: 20250113
  Receipt Date: 20250113
  Transmission Date: 20250409
  Serious: Yes (Death, Life-Threatening, Hospitalization, Other)
  Sender: SANOFI AVENTIS
  Company Number: US-SA-200212046GDDC

PATIENT
  Age: 27 Year
  Sex: Female

DRUGS (11)
  1. LOVENOX [Suspect]
     Active Substance: ENOXAPARIN SODIUM
     Dosage: 1 MG/KG, BID
     Route: 058
  2. HEPARIN [Suspect]
     Active Substance: HEPARIN SODIUM
  3. WARFARIN SODIUM [Suspect]
     Active Substance: WARFARIN SODIUM
     Route: 048
  4. DIGOXIN [Suspect]
     Active Substance: DIGOXIN
  5. ELECTROLYTES NOS [Concomitant]
     Active Substance: ELECTROLYTES NOS
  6. ELECTROLYTES NOS [Concomitant]
     Active Substance: ELECTROLYTES NOS
  7. MAGNESIUM SULFATE [Concomitant]
     Active Substance: MAGNESIUM SULFATE
  8. APROTININ [Concomitant]
     Active Substance: APROTININ
  9. MANNITOL [Concomitant]
     Active Substance: MANNITOL
  10. MANNITOL [Concomitant]
     Active Substance: MANNITOL
  11. ALBUMIN HUMAN [Concomitant]
     Active Substance: ALBUMIN HUMAN

REACTIONS (15)
  - Hemiplegia [Fatal]
  - Brain death [Fatal]
  - Coma [Fatal]
  - Respiratory failure [Recovered/Resolved]
  - Anxiety [Recovered/Resolved]
  - Dyspnoea [Recovered/Resolved]
  - Lung infiltration [Recovered/Resolved]
  - Sepsis [Recovered/Resolved]
  - Cardiogenic shock [Recovered/Resolved]
  - Pulmonary oedema [Recovered/Resolved]
  - Post procedural haemorrhage [Recovered/Resolved]
  - Foetal death [Not Recovered/Not Resolved]
  - Exposure during pregnancy [Not Recovered/Not Resolved]
  - Haemorrhage intracranial [Fatal]
  - Coagulopathy [Fatal]
